FAERS Safety Report 9251521 (Version 3)
Quarter: 2013Q2

REPORT INFORMATION
  Report Type: Spontaneous
  Country: FR (occurrence: FR)
  Receive Date: 20130424
  Receipt Date: 20130515
  Transmission Date: 20140414
  Serious: Yes (Other)
  Sender: FDA-Public Use
  Company Number: FR-BAYER-2013-048486

PATIENT
  Age: 23 Year
  Sex: Female
  Weight: 65 kg

DRUGS (2)
  1. MIRENA [Suspect]
     Dosage: 20 MCG/24HR, CONT
     Route: 015
     Dates: start: 20110527, end: 20121217
  2. PONSTYL [Concomitant]
     Dosage: 2-6 DF PER DAY, PRN
     Route: 048

REACTIONS (12)
  - Procedural pain [None]
  - Vaginal haemorrhage [None]
  - Metrorrhagia [Recovered/Resolved]
  - Abdominal pain [Recovered/Resolved]
  - Pelvic pain [Recovered/Resolved]
  - Uterine cyst [None]
  - Streptococcus test positive [None]
  - Vaginal discharge [None]
  - Dyspareunia [None]
  - Ovarian cyst [None]
  - Ovarian enlargement [None]
  - Device physical property issue [None]
